FAERS Safety Report 20329766 (Version 2)
Quarter: 2022Q1

REPORT INFORMATION
  Report Type: Spontaneous
  Country: US (occurrence: US)
  Receive Date: 20220112
  Receipt Date: 20220303
  Transmission Date: 20220424
  Serious: No
  Sender: FDA-Public Use
  Company Number: US-HETERO-HET2022US00021

PATIENT

DRUGS (6)
  1. LOSARTAN [Suspect]
     Active Substance: LOSARTAN
     Indication: Hypertension
     Dosage: 50 MG, Q.D., BOTTLE OF 90 TABLETS
     Route: 048
     Dates: start: 20211230
  2. CENTRUM                            /02217401/ [Concomitant]
     Indication: Product used for unknown indication
     Dosage: UNK
     Route: 065
  3. TRAZODONE [Concomitant]
     Active Substance: TRAZODONE HYDROCHLORIDE
     Indication: Product used for unknown indication
     Dosage: 50 MG ( HALF TABLET I.E., 25MG IN A DAY), BOTTLE OF 90 TABLETS
     Route: 065
  4. CHLORTHALIDONE [Concomitant]
     Active Substance: CHLORTHALIDONE
     Indication: Cardiac valve disease
     Dosage: UNK
     Route: 065
  5. BAUSCH + LOMB MOISTURE EYES [Concomitant]
     Indication: Product used for unknown indication
     Dosage: UNK
     Route: 065
  6. NERVIN                             /00056104/ [Concomitant]
     Indication: Product used for unknown indication
     Dosage: UNK
     Route: 065

REACTIONS (1)
  - Drug ineffective [Unknown]

NARRATIVE: CASE EVENT DATE: 20211230
